FAERS Safety Report 7289035-1 (Version None)
Quarter: 2011Q1

REPORT INFORMATION
  Report Type: 
  Country: None (occurrence: None)
  Receive Date: 20110211
  Receipt Date: 20110202
  Transmission Date: 20110831
  Serious: Yes (Hospitalization)
  Sender: FDA-Public Use
  Company Number: US-SANOFI-AVENTIS-2010SA026516

PATIENT
  Age: 89 Year
  Sex: Male
  Weight: 61 kg

DRUGS (17)
  1. MULTI-VITAMINS [Concomitant]
  2. LIPITOR [Concomitant]
     Dates: start: 20100601
  3. PLAVIX [Suspect]
     Route: 048
     Dates: start: 20100226
  4. PLAVIX [Suspect]
     Route: 048
     Dates: start: 20100101, end: 20100508
  5. IRON [Concomitant]
  6. FISH OIL [Concomitant]
  7. TAMSULOSIN HYDROCHLORIDE [Concomitant]
     Dates: start: 20100201
  8. ASPIRIN [Concomitant]
     Indication: PROPHYLAXIS
     Dates: start: 20100501
  9. LIPITOR [Concomitant]
     Dates: start: 20100226
  10. PLAVIX [Suspect]
     Indication: THROMBOSIS PROPHYLAXIS
     Route: 048
     Dates: start: 20100226
  11. PLAVIX [Suspect]
     Route: 048
     Dates: start: 20100101, end: 20100101
  12. PROTEIN SUPPLEMENTS [Concomitant]
  13. GENERAL NUTRIENTS [Concomitant]
  14. PLAVIX [Suspect]
     Route: 048
     Dates: start: 20100101, end: 20100101
  15. PLAVIX [Suspect]
     Route: 048
     Dates: start: 20100101, end: 20100508
  16. ASPIRIN [Concomitant]
     Dates: start: 20100501
  17. ZESTRIL [Concomitant]
     Indication: HYPERTENSION
     Dates: start: 20100226, end: 20100301

REACTIONS (8)
  - SOMNOLENCE [None]
  - APLASTIC ANAEMIA [None]
  - PALLOR [None]
  - GAIT DISTURBANCE [None]
  - HAEMOGLOBIN DECREASED [None]
  - HAEMATOCRIT DECREASED [None]
  - UNDERDOSE [None]
  - FATIGUE [None]
